FAERS Safety Report 5573239-X (Version None)
Quarter: 2008Q1

REPORT INFORMATION
  Report Type: 
  Country: None (occurrence: None)
  Receive Date: 20071220
  Receipt Date: 20071212
  Transmission Date: 20080703
  Serious: Yes (Other)
  Sender: FDA-Public Use
  Company Number: JPI-P-002591

PATIENT
  Age: 53 Year
  Sex: Female

DRUGS (13)
  1. XYREM [Suspect]
     Indication: FIBROMYALGIA
     Dosage: SEE IMAGE
     Route: 048
     Dates: start: 20070818, end: 20070822
  2. XYREM [Suspect]
     Indication: FIBROMYALGIA
     Dosage: SEE IMAGE
     Route: 048
     Dates: start: 20070823, end: 20070925
  3. XYREM [Suspect]
     Indication: FIBROMYALGIA
     Dosage: SEE IMAGE
     Route: 048
     Dates: end: 20071024
  4. XYREM [Suspect]
     Indication: FIBROMYALGIA
     Dosage: SEE IMAGE
     Route: 048
     Dates: start: 20070926
  5. XYREM [Suspect]
     Indication: FIBROMYALGIA
     Dosage: SEE IMAGE
     Route: 048
     Dates: start: 20071107
  6. VENLAFAXINE HCL [Concomitant]
  7. BUPROPION HYDROCHLORIDE [Concomitant]
  8. TOPIRAMATE [Concomitant]
  9. MORPHINE SULFATE EXTENDED-RELEASE (MORPHINE SULFATE) (TABLETS) [Concomitant]
  10. PRAMIPEXOLE (PRAMIPEXOLE) (TABLETS) [Concomitant]
  11. LEVOTHYROXINE SODIUM [Concomitant]
  12. ROSUVASTATIN CALCIUM (ROSUVASTATIN CALCIUM) [Concomitant]
  13. HYDROMORPHONE HCL [Concomitant]

REACTIONS (5)
  - BEDRIDDEN [None]
  - FALL [None]
  - HYPOKINESIA [None]
  - MOBILITY DECREASED [None]
  - MUSCLE STRAIN [None]
